FAERS Safety Report 9785608 (Version 1)
Quarter: 2013Q4

REPORT INFORMATION
  Report Type: Spontaneous
  Country: US (occurrence: US)
  Receive Date: 20131227
  Receipt Date: 20131227
  Transmission Date: 20140711
  Serious: No
  Sender: FDA-Public Use
  Company Number: US-BAYER-2013-157032

PATIENT
  Age: 44 Year
  Sex: Male

DRUGS (3)
  1. LEVITRA [Suspect]
     Indication: ERECTILE DYSFUNCTION
     Dosage: 10 MG, TWICE A MONTH
     Route: 048
     Dates: start: 2007, end: 201303
  2. LEVITRA [Suspect]
     Indication: ERECTILE DYSFUNCTION
     Dosage: 20 MG, TWICE A MONTH
     Route: 048
     Dates: start: 2007, end: 201303
  3. LIALDA [Concomitant]

REACTIONS (2)
  - Headache [Recovered/Resolved]
  - Drug effect incomplete [Recovered/Resolved]
